FAERS Safety Report 8917767 (Version 3)
Quarter: 2013Q3

REPORT INFORMATION
  Report Type: Spontaneous
  Country: US (occurrence: US)
  Receive Date: 20121120
  Receipt Date: 20130705
  Transmission Date: 20140515
  Serious: No
  Sender: FDA-Public Use
  Company Number: US-009507513-1211USA007191

PATIENT
  Sex: Male
  Weight: 81.18 kg

DRUGS (3)
  1. PEGINTRON [Suspect]
     Indication: HEPATITIS C
     Dosage: UNK
     Dates: start: 20120706, end: 20130321
  2. REBETOL [Suspect]
     Indication: HEPATITIS C
     Dosage: UNK
     Dates: start: 20120706, end: 20130426
  3. VICTRELIS [Suspect]
     Indication: HEPATITIS C
     Dosage: UNK
     Dates: start: 20120803, end: 20130426

REACTIONS (3)
  - Injection site reaction [Recovered/Resolved]
  - Nausea [Unknown]
  - Pruritus [Unknown]
